FAERS Safety Report 6445487-8 (Version None)
Quarter: 2009Q4

REPORT INFORMATION
  Report Type: 
  Country: None (occurrence: None)
  Receive Date: 20091110
  Receipt Date: 20090810
  Transmission Date: 20100525
  Serious: No
  Sender: FDA-Public Use
  Company Number: 1000008101

PATIENT
  Age: 62 Year
  Sex: Female

DRUGS (16)
  1. SAVELLA [Suspect]
     Indication: FIBROMYALGIA
     Dosage: SEE IMAGE
     Route: 048
     Dates: start: 20090728, end: 20090728
  2. SAVELLA [Suspect]
     Indication: FIBROMYALGIA
     Dosage: SEE IMAGE
     Route: 048
     Dates: start: 20090729, end: 20090730
  3. SAVELLA [Suspect]
     Indication: FIBROMYALGIA
     Dosage: SEE IMAGE
     Route: 048
     Dates: start: 20090731, end: 20090803
  4. SAVELLA [Suspect]
     Indication: FIBROMYALGIA
     Dosage: SEE IMAGE
     Route: 048
     Dates: start: 20090804
  5. MULTI-VITAMINS [Concomitant]
  6. AGGRENOX [Concomitant]
  7. VICODIN [Concomitant]
  8. XANAX [Concomitant]
  9. MOTRIN [Concomitant]
  10. DYAZIDE [Concomitant]
  11. DOCUSATE SODIUM [Concomitant]
  12. DIOVAN [Concomitant]
  13. CELEBREX [Concomitant]
  14. LASIX [Concomitant]
  15. NORVASC [Concomitant]
  16. POTASSIUM CHLORIDE [Concomitant]

REACTIONS (4)
  - FLUSHING [None]
  - NAUSEA [None]
  - TREMOR [None]
  - URINARY RETENTION [None]
